FAERS Safety Report 21099094 (Version 1)
Quarter: 2022Q3

REPORT INFORMATION
  Report Type: Spontaneous
  Country: US (occurrence: None)
  Receive Date: 20220719
  Receipt Date: 20220719
  Transmission Date: 20221027
  Serious: No
  Sender: FDA-Public Use
  Company Number: None

PATIENT
  Age: 29 Year
  Sex: Male
  Weight: 58.5 kg

DRUGS (1)
  1. PAXLOVID [Suspect]
     Active Substance: NIRMATRELVIR\RITONAVIR
     Indication: COVID-19
     Dosage: OTHER QUANTITY : 3 TABLET(S);?FREQUENCY : EVERY 12 HOURS;?
     Route: 048
     Dates: start: 20220706, end: 20220710

REACTIONS (8)
  - Decreased appetite [None]
  - Somnolence [None]
  - Fatigue [None]
  - Hypersomnia [None]
  - Abdominal pain upper [None]
  - Nausea [None]
  - Night sweats [None]
  - Abdominal pain lower [None]

NARRATIVE: CASE EVENT DATE: 20220717
